FAERS Safety Report 15932468 (Version 2)
Quarter: 2019Q1

REPORT INFORMATION
  Report Type: Spontaneous
  Country: US (occurrence: US)
  Receive Date: 20190207
  Receipt Date: 20190213
  Transmission Date: 20190417
  Serious: Yes (Hospitalization)
  Sender: FDA-Public Use
  Company Number: US-TEVA-2019-US-1007529

PATIENT
  Age: 67 Year
  Sex: Male

DRUGS (6)
  1. ESCITALOPRAM [Interacting]
     Active Substance: ESCITALOPRAM OXALATE
     Indication: GENERALISED ANXIETY DISORDER
     Dosage: 20 MILLIGRAM DAILY;
     Route: 065
  2. PIPERACILLIN/TAZOBACTAM [Concomitant]
     Active Substance: PIPERACILLIN SODIUM\TAZOBACTAM SODIUM
     Indication: STAPHYLOCOCCAL INFECTION
     Route: 065
  3. TRAZODONE [Interacting]
     Active Substance: TRAZODONE HYDROCHLORIDE
     Dosage: 150 MILLIGRAM DAILY; AT NIGHT
     Route: 065
  4. CLONAZEPAM. [Interacting]
     Active Substance: CLONAZEPAM
     Indication: INSOMNIA
     Route: 065
  5. LINEZOLID. [Suspect]
     Active Substance: LINEZOLID
     Indication: STAPHYLOCOCCAL INFECTION
     Route: 065
  6. TRAZODONE [Interacting]
     Active Substance: TRAZODONE HYDROCHLORIDE
     Indication: GENERALISED ANXIETY DISORDER
     Dosage: 300 MILLIGRAM DAILY; AT NIGHT (NIGHTLY); HIGH-DOSE
     Route: 065

REACTIONS (4)
  - Symptom masked [Recovered/Resolved]
  - Serotonin syndrome [Recovered/Resolved]
  - Drug interaction [Recovered/Resolved]
  - Frequent bowel movements [Unknown]
